FAERS Safety Report 13234055 (Version 1)
Quarter: 2017Q1

REPORT INFORMATION
  Report Type: Spontaneous
  Country: US (occurrence: US)
  Receive Date: 20170214
  Receipt Date: 20170214
  Transmission Date: 20170428
  Serious: No
  Sender: FDA-Public Use
  Company Number: None

PATIENT
  Age: 29 Year
  Sex: Male
  Weight: 108 kg

DRUGS (5)
  1. FEXOFENADINE [Concomitant]
     Active Substance: FEXOFENADINE\FEXOFENADINE HYDROCHLORIDE
  2. FLUOXETINE [Concomitant]
     Active Substance: FLUOXETINE HYDROCHLORIDE
  3. MEN^S MULTIVITAMIN [Concomitant]
  4. FLUTICASONE NADAL SPRAY [Concomitant]
  5. PSEUDOEPHEDRINE 24 HOUR [Suspect]
     Active Substance: PSEUDOEPHEDRINE
     Indication: SINUS CONGESTION
     Dosage: ?          QUANTITY:1 TABLET(S);?
     Route: 048

REACTIONS (2)
  - Erectile dysfunction [None]
  - Ejaculation disorder [None]

NARRATIVE: CASE EVENT DATE: 20170213
